FAERS Safety Report 8418057-X (Version None)
Quarter: 2012Q2

REPORT INFORMATION
  Report Type: 
  Country: None (occurrence: None)
  Receive Date: 20120531
  Receipt Date: 20120515
  Transmission Date: 20120825
  Serious: Yes (Hospitalization, Other)
  Sender: FDA-Public Use
  Company Number: 20120325

PATIENT
  Age: 29 Year
  Sex: Female

DRUGS (5)
  1. EPINEPHRINE [Suspect]
     Indication: ANAPHYLAXIS TREATMENT
     Dosage: 1 MG X 2 DOSES
  2. POTASSIUM CHLORIDE [Concomitant]
  3. METHYLPFREDNISOLONE [Concomitant]
  4. DIPHENHYDRAMINE HCL [Concomitant]
  5. SODIUM CHLORIDE [Concomitant]

REACTIONS (13)
  - SINUS BRADYCARDIA [None]
  - PLEURITIC PAIN [None]
  - TOXICITY TO VARIOUS AGENTS [None]
  - ABDOMINAL PAIN [None]
  - MYALGIA [None]
  - INCORRECT ROUTE OF DRUG ADMINISTRATION [None]
  - HEADACHE [None]
  - HEART RATE INCREASED [None]
  - ELECTROCARDIOGRAM ST SEGMENT ABNORMAL [None]
  - OVERDOSE [None]
  - DRUG ADMINISTRATION ERROR [None]
  - HYPOTENSION [None]
  - ERYTHEMA [None]
